FAERS Safety Report 8555230-4 (Version None)
Quarter: 2012Q3

REPORT INFORMATION
  Report Type: 
  Country: None (occurrence: None)
  Receive Date: 20120731
  Receipt Date: 20120726
  Transmission Date: 20120928
  Serious: Yes (Hospitalization)
  Sender: FDA-Public Use
  Company Number: CHPA2012US015286

PATIENT
  Age: 36 Year
  Sex: Female

DRUGS (7)
  1. EXCEDRIN TENSION HEADACHE CAPLETS [Suspect]
     Indication: MIGRAINE
     Dosage: 2 DF, PRN
     Route: 048
     Dates: start: 20110101, end: 20120601
  2. EXCEDRIN (MIGRAINE) [Suspect]
     Indication: MIGRAINE
     Dosage: 2 UNK, UNK
     Route: 048
  3. CRESTOR [Suspect]
     Dosage: UNK, UNK
  4. FENOFIBRATE [Suspect]
     Dosage: UNK, UNK
  5. EXCEDRIN (MIGRAINE) [Suspect]
     Indication: MIGRAINE
     Dosage: 2 DF, UNK
     Route: 048
  6. LORTAB [Suspect]
     Dosage: UNK, UNK
  7. LISINOPRIL [Suspect]
     Dosage: UNK, UNK

REACTIONS (3)
  - SCAR [None]
  - DRUG SCREEN POSITIVE [None]
  - CERVIX DISORDER [None]
